FAERS Safety Report 8362170-2 (Version None)
Quarter: 2012Q2

REPORT INFORMATION
  Report Type: 
  Country: None (occurrence: None)
  Receive Date: 20120515
  Receipt Date: 20120510
  Transmission Date: 20120825
  Serious: Yes (Other)
  Sender: FDA-Public Use
  Company Number: PHHY2012CN040000

PATIENT
  Age: 75 Year
  Sex: Female

DRUGS (2)
  1. AMIODARONE HCL [Suspect]
     Indication: SINUS RHYTHM
  2. WARFARIN SODIUM [Concomitant]
     Indication: PROPHYLAXIS

REACTIONS (13)
  - WEIGHT DECREASED [None]
  - THYROIDITIS [None]
  - RIGHT VENTRICULAR FAILURE [None]
  - HEPATOMEGALY [None]
  - CARDIAC MURMUR [None]
  - ATRIAL FIBRILLATION [None]
  - DILATATION VENTRICULAR [None]
  - TRICUSPID VALVE INCOMPETENCE [None]
  - PULMONARY HYPERTENSION [None]
  - OEDEMA [None]
  - OEDEMA PERIPHERAL [None]
  - HYPERTHYROIDISM [None]
  - RIGHT ATRIAL DILATATION [None]
